FAERS Safety Report 17824988 (Version 1)
Quarter: 2020Q2

REPORT INFORMATION
  Report Type: Spontaneous
  Country: US (occurrence: US)
  Receive Date: 20200526
  Receipt Date: 20200526
  Transmission Date: 20200714
  Serious: Yes (Life-Threatening)
  Sender: FDA-Public Use
  Company Number: None

PATIENT
  Age: 72 Year
  Sex: Female
  Weight: 175.6 kg

DRUGS (1)
  1. BARICITINIB [Suspect]
     Active Substance: BARICITINIB
     Indication: COVID-19
     Route: 048
     Dates: start: 20200516, end: 20200518

REACTIONS (7)
  - Bacterial infection [None]
  - Leukocytosis [None]
  - End stage renal disease [None]
  - Tachycardia [None]
  - Vomiting [None]
  - Off label use [None]
  - Septic shock [None]

NARRATIVE: CASE EVENT DATE: 20200519
